FAERS Safety Report 8195712-0 (Version None)
Quarter: 2012Q1

REPORT INFORMATION
  Report Type: 
  Country: None (occurrence: None)
  Receive Date: 20120308
  Receipt Date: 20120301
  Transmission Date: 20120608
  Serious: Yes (Hospitalization)
  Sender: FDA-Public Use
  Company Number: FR-PFIZER INC-2012054653

PATIENT
  Age: 58 Year
  Sex: Male

DRUGS (4)
  1. IRINOTECAN HCL [Suspect]
     Dosage: 187.5 MG (125MG/M2), CYCLIC (DAY 1 OF THE SECOND CYCLE)
     Dates: start: 20111216, end: 20111216
  2. AVASTIN [Suspect]
     Dosage: 850 MG (10 MG/M2), CYCLIC (DAY 1 OF THE SECOND CYCLE)
     Dates: start: 20111216, end: 20111216
  3. AVASTIN [Suspect]
     Indication: GLIOBLASTOMA
     Dosage: 850 MG (10 MG/M2), CYCLIC (DAY 1 OF THE FIRST CYCLE)
     Route: 042
     Dates: start: 20111202, end: 20111202
  4. IRINOTECAN HCL [Suspect]
     Indication: GLIOBLASTOMA
     Dosage: 187.5 MG (125MG/M2), CYCLIC (DAY 1 OF THE FIRST CYCLE)
     Route: 042
     Dates: start: 20111202, end: 20111202

REACTIONS (2)
  - PNEUMOPERITONEUM [None]
  - COLON INJURY [None]
